FAERS Safety Report 21405518 (Version 2)
Quarter: 2023Q1

REPORT INFORMATION
  Report Type: Report from Study
  Country: US (occurrence: US)
  Receive Date: 20221004
  Receipt Date: 20230116
  Transmission Date: 20230418
  Serious: No
  Sender: FDA-Public Use
  Company Number: US-ABBVIE-4129143

PATIENT
  Age: 71 Year
  Sex: Male
  Weight: 65.77 kg

DRUGS (8)
  1. DUOPA [Suspect]
     Active Substance: CARBIDOPA\LEVODOPA
     Indication: Product used for unknown indication
     Route: 050
  2. DUOPA [Suspect]
     Active Substance: CARBIDOPA\LEVODOPA
     Route: 050
  3. RIVASTIGMINE [Concomitant]
     Active Substance: RIVASTIGMINE
     Indication: Product used for unknown indication
     Dosage: PATCH
  4. Ropinirole 125 MG [Concomitant]
     Indication: Product used for unknown indication
     Dosage: 3 DAYS
  5. proscar 5 MG [Concomitant]
     Indication: Product used for unknown indication
  6. LEXAPRO [Concomitant]
     Active Substance: ESCITALOPRAM OXALATE
     Indication: Product used for unknown indication
  7. ativan 1MG [Concomitant]
     Indication: Product used for unknown indication
  8. nuplazid 34 MG [Concomitant]
     Indication: Product used for unknown indication

REACTIONS (3)
  - Device dislocation [Recovered/Resolved]
  - Device connection issue [Recovered/Resolved]
  - Accident [Unknown]

NARRATIVE: CASE EVENT DATE: 20220910
